FAERS Safety Report 9397889 (Version 2)
Quarter: 2013Q3

REPORT INFORMATION
  Report Type: Spontaneous
  Country: US (occurrence: US)
  Receive Date: 20130712
  Receipt Date: 20130830
  Transmission Date: 20140515
  Serious: Yes (Other)
  Sender: FDA-Public Use
  Company Number: US-PFIZER INC-2013203428

PATIENT
  Age: 47 Year
  Sex: Female

DRUGS (2)
  1. CHANTIX [Suspect]
     Indication: SMOKING CESSATION THERAPY
     Dosage: 0.5 TO 1.0 MG, 2X/DAY
     Route: 048
     Dates: start: 20070316, end: 20070415
  2. CHANTIX [Suspect]
     Dosage: UNK
     Route: 048
     Dates: start: 200712

REACTIONS (5)
  - Loss of consciousness [Unknown]
  - Fall [Unknown]
  - Joint dislocation [Unknown]
  - Paraesthesia [Unknown]
  - Dizziness [Unknown]
